FAERS Safety Report 4852945-6 (Version None)
Quarter: 2005Q4

REPORT INFORMATION
  Report Type: 
  Country: None (occurrence: None)
  Receive Date: 20051212
  Receipt Date: 20051121
  Transmission Date: 20060501
  Serious: Yes (Other)
  Sender: FDA-Public Use
  Company Number: USA040978159

PATIENT
  Age: 74 Year
  Sex: Male
  Weight: 78.2 kg

DRUGS (2)
  1. HUMULIN R [Suspect]
     Indication: DIABETES MELLITUS
     Dosage: 6 U, DAILY (1/D)
     Dates: start: 19940101
  2. HUMULIN N [Suspect]
     Indication: DIABETES MELLITUS
     Dosage: 24 U, DAILY (1/D)
     Dates: start: 19940101

REACTIONS (10)
  - BLINDNESS [None]
  - CORNEAL TRANSPLANT [None]
  - ECTROPION [None]
  - EYE OPERATION [None]
  - LENS IMPLANT [None]
  - LENS IMPLANT REMOVAL [None]
  - MYOCARDIAL INFARCTION [None]
  - PHARMACEUTICAL PRODUCT COMPLAINT [None]
  - RETINAL DETACHMENT [None]
  - VISUAL ACUITY REDUCED [None]
